FAERS Safety Report 21917813 (Version 2)
Quarter: 2023Q1

REPORT INFORMATION
  Report Type: Report from Study
  Country: BR (occurrence: BR)
  Receive Date: 20230127
  Receipt Date: 20230214
  Transmission Date: 20230417
  Serious: Yes (Other)
  Sender: FDA-Public Use
  Company Number: BR-CELLTRION INC.-2023BR001567

PATIENT

DRUGS (6)
  1. INFLIXIMAB [Suspect]
     Active Substance: INFLIXIMAB
     Indication: Rheumatoid arthritis
     Dosage: IN THE FIRST INFUSION SHE USED 6 AMPOULES
     Route: 042
     Dates: start: 20221201
  2. INFLIXIMAB [Suspect]
     Active Substance: INFLIXIMAB
     Dosage: IN THE SECOND INFUSION AFTER 15 DAYS SHE USED 4 AMPOULES
     Route: 042
  3. INFLIXIMAB [Suspect]
     Active Substance: INFLIXIMAB
     Dosage: 2 AMPOULES EVERY 2 MONTHS
     Route: 042
  4. LOSARTAN [Concomitant]
     Active Substance: LOSARTAN
     Indication: Hypertension
     Dosage: 2 CAPSULES PER DAY (START: 6 YEARS AGO)
     Route: 048
  5. HYDROCHLOROTHIAZIDE [Concomitant]
     Active Substance: HYDROCHLOROTHIAZIDE
     Indication: Hypertension
     Dosage: 2 CAPSULES PER DAY (START: 6 YEARS AGO)
     Route: 048
  6. ASCORBIC ACID\ZINC [Concomitant]
     Active Substance: ASCORBIC ACID\ZINC
     Indication: COVID-19
     Dosage: START: 1 MONTH AGO
     Route: 048

REACTIONS (7)
  - COVID-19 [Unknown]
  - Blindness [Unknown]
  - Skin burning sensation [Unknown]
  - Arthralgia [Unknown]
  - Lip oedema [Unknown]
  - Intentional dose omission [Unknown]
  - Off label use [Unknown]
